FAERS Safety Report 8160388-5 (Version None)
Quarter: 2012Q1

REPORT INFORMATION
  Report Type: 
  Country: None (occurrence: None)
  Receive Date: 20120223
  Receipt Date: 20120216
  Transmission Date: 20120608
  Serious: Yes (Other)
  Sender: FDA-Public Use
  Company Number: JP-PFIZER INC-2012042568

PATIENT

DRUGS (2)
  1. REMICADE [Concomitant]
     Indication: CROHN'S DISEASE
  2. SOLU-CORTEF [Suspect]
     Indication: CROHN'S DISEASE
     Dosage: UNK
     Route: 042

REACTIONS (1)
  - CHORIORETINOPATHY [None]
